FAERS Safety Report 13865643 (Version 2)
Quarter: 2017Q3

REPORT INFORMATION
  Report Type: Spontaneous
  Country: FR (occurrence: FR)
  Receive Date: 20170814
  Receipt Date: 20170815
  Transmission Date: 20171127
  Serious: Yes (Other)
  Sender: FDA-Public Use
  Company Number: FR-SA-2017SA145124

PATIENT
  Age: 74 Year
  Sex: Male

DRUGS (2)
  1. PREVISCAN [Concomitant]
     Active Substance: FLUINDIONE
     Dosage: 1/4 TABLET ONE DAY AND 1/2 TABLET THE NEXT DAY AND SO ON
     Route: 065
  2. LOVENOX [Suspect]
     Active Substance: ENOXAPARIN SODIUM
     Dosage: ONE IN MORNING AT 7 AM AND THE OTHER AT 5 PM
     Route: 065

REACTIONS (8)
  - Faeces discoloured [Unknown]
  - Gastric disorder [Unknown]
  - Pruritus [Unknown]
  - Treatment noncompliance [Unknown]
  - Faeces hard [Unknown]
  - Headache [Unknown]
  - Genital rash [Unknown]
  - Acne [Unknown]
